FAERS Safety Report 20119597 (Version 6)
Quarter: 2022Q3

REPORT INFORMATION
  Report Type: Report from Study
  Country: AU (occurrence: AU)
  Receive Date: 20211126
  Receipt Date: 20220823
  Transmission Date: 20221026
  Serious: Yes (Death, Hospitalization, Disabling, Other)
  Sender: FDA-Public Use
  Company Number: AU-NOVARTISPH-NVSC2021AU261799

PATIENT
  Age: 14 Year
  Sex: Female
  Weight: 97.3 kg

DRUGS (7)
  1. TRAMETINIB [Suspect]
     Active Substance: TRAMETINIB
     Indication: Glioma
     Dosage: 2 MG, QD
     Route: 048
     Dates: start: 20210816, end: 20211020
  2. TRAMETINIB [Suspect]
     Active Substance: TRAMETINIB
     Indication: Gene mutation
     Dosage: 0.5 MG, QD (STRENGTH :2 MG)
     Route: 048
  3. TRAMETINIB [Suspect]
     Active Substance: TRAMETINIB
     Indication: Glioblastoma multiforme
     Dosage: UNK
     Route: 065
     Dates: start: 20210816, end: 20211105
  4. TRAMETINIB [Suspect]
     Active Substance: TRAMETINIB
     Dosage: 1 MG
     Route: 065
  5. TRAMETINIB [Suspect]
     Active Substance: TRAMETINIB
     Dosage: 0.5MG/1MG DAILY ALTERNATING
     Route: 048
     Dates: start: 20210816, end: 20220713
  6. DEXAMETHASONE [Concomitant]
     Active Substance: DEXAMETHASONE
     Indication: Product used for unknown indication
     Dosage: 3 MG, QD
     Route: 048
     Dates: start: 20210608, end: 20211020
  7. BEVACIZUMAB [Concomitant]
     Active Substance: BEVACIZUMAB
     Indication: Product used for unknown indication
     Dosage: 5 MG/KG, BIW (2 X WEEKLY)
     Route: 065
     Dates: start: 20210809, end: 20220705

REACTIONS (5)
  - Glioblastoma multiforme [Fatal]
  - Malignant neoplasm progression [Fatal]
  - Skin ulcer [Recovering/Resolving]
  - Skin degenerative disorder [Not Recovered/Not Resolved]
  - Product temperature excursion issue [Unknown]

NARRATIVE: CASE EVENT DATE: 20211004
